FAERS Safety Report 9831253 (Version 2)
Quarter: 2014Q1

REPORT INFORMATION
  Report Type: Spontaneous
  Country: US (occurrence: US)
  Receive Date: 20140121
  Receipt Date: 20140127
  Transmission Date: 20141002
  Serious: Yes (Hospitalization)
  Sender: FDA-Public Use
  Company Number: US-BAXTER-2014BAX002063

PATIENT
  Age: 57 Year
  Sex: Female

DRUGS (6)
  1. DIANEAL LOW CALCIUM [Suspect]
     Indication: PERITONEAL DIALYSIS
     Route: 033
     Dates: start: 2004
  2. DIANEAL LOW CALCIUM [Suspect]
     Route: 033
     Dates: start: 2004
  3. DIANEAL LOW CALCIUM [Suspect]
     Indication: PERITONEAL DIALYSIS
     Route: 033
     Dates: start: 2004
  4. DIANEAL LOW CALCIUM [Suspect]
     Route: 033
     Dates: start: 2004
  5. METOPROLOL [Concomitant]
     Indication: HYPERTENSION
     Route: 048
  6. AMLODIPINE [Concomitant]
     Indication: HYPERTENSION
     Route: 048

REACTIONS (3)
  - Blood pressure fluctuation [Recovering/Resolving]
  - Haematemesis [Recovered/Resolved]
  - Sinusitis [Recovered/Resolved]
